FAERS Safety Report 4777945-6 (Version None)
Quarter: 2005Q3

REPORT INFORMATION
  Report Type: 
  Country: None (occurrence: None)
  Receive Date: 20050921
  Receipt Date: 20050906
  Transmission Date: 20060218
  Serious: Yes (Life-Threatening)
  Sender: FDA-Public Use
  Company Number: 2003JP007517

PATIENT
  Age: 83 Year
  Sex: Female
  Weight: 39.4 kg

DRUGS (14)
  1. TACROLIMUS CAPSULES (TACROLIMUS CAPSULES) CAPSULE [Suspect]
     Indication: MYASTHENIA GRAVIS
     Dosage: SEE IMAGE, ORAL
     Route: 048
     Dates: start: 20020829, end: 20020904
  2. TACROLIMUS CAPSULES (TACROLIMUS CAPSULES) CAPSULE [Suspect]
     Indication: MYASTHENIA GRAVIS
     Dosage: SEE IMAGE, ORAL
     Route: 048
     Dates: start: 20020921, end: 20021223
  3. TACROLIMUS CAPSULES (TACROLIMUS CAPSULES) CAPSULE [Suspect]
     Indication: MYASTHENIA GRAVIS
     Dosage: SEE IMAGE, ORAL
     Route: 048
     Dates: start: 20021224
  4. MESTINON [Suspect]
     Indication: MYASTHENIA GRAVIS
     Dosage: 120.00 MG, D, ORAL
     Route: 048
     Dates: end: 20021120
  5. WARFARIN (WARFARIN) TABLET [Concomitant]
  6. PARAMIDIN (BUCOLOME) CAPSULE [Concomitant]
  7. DIART (AZOSEMIDE) TABLET [Concomitant]
  8. HERBESSOR R (DILTIAZEM HYDROCHLORIDE) CAPSULE [Concomitant]
  9. SEPAMIT CAPSULE [Concomitant]
  10. GRANDAXIN (TOFISOPAM) [Concomitant]
  11. PRAVASTATIN [Concomitant]
  12. NITRODERM [Concomitant]
  13. BAYASPIRIN TABLET [Concomitant]
  14. NABUMETONE [Concomitant]

REACTIONS (5)
  - ACUTE MYOCARDIAL INFARCTION [None]
  - CHOLINERGIC SYNDROME [None]
  - ELECTROCARDIOGRAM ST-T CHANGE [None]
  - ELECTROCARDIOGRAM T WAVE INVERSION [None]
  - MYASTHENIA GRAVIS CRISIS [None]
